FAERS Safety Report 7824300-8 (Version None)
Quarter: 2011Q4

REPORT INFORMATION
  Report Type: 
  Country: None (occurrence: None)
  Receive Date: 20111014
  Receipt Date: 20110927
  Transmission Date: 20120403
  Serious: Yes (Hospitalization)
  Sender: FDA-Public Use
  Company Number: US-2011-10743

PATIENT
  Age: 53 Year
  Sex: Female

DRUGS (3)
  1. BUSULFEX [Suspect]
     Indication: STEM CELL TRANSPLANT
     Dosage: 56.40 MG  MILLIGRAM(S), QD, INTRAVENOUS
     Route: 042
     Dates: start: 20110910, end: 20110911
  2. THYMOGLOBULIN [Concomitant]
  3. FLUDARABINE PHOSPHATE [Concomitant]

REACTIONS (2)
  - CYTOLYTIC HEPATITIS [None]
  - STEM CELL TRANSPLANT [None]
